FAERS Safety Report 26111184 (Version 1)
Quarter: 2025Q4

REPORT INFORMATION
  Report Type: Spontaneous
  Country: EU (occurrence: EU)
  Receive Date: 20251202
  Receipt Date: 20251202
  Transmission Date: 20260118
  Serious: Yes (Other)
  Sender: CELLTRION
  Company Number: EU-PFIZER INC-PV202500135192

PATIENT

DRUGS (9)
  1. INFLIXIMAB [Suspect]
     Active Substance: INFLIXIMAB
     Indication: Autoinflammatory disease
  2. INFLIXIMAB [Suspect]
     Active Substance: INFLIXIMAB
     Indication: Autoinflammatory disease
     Dosage: UNK
  3. ETANERCEPT [Suspect]
     Active Substance: ETANERCEPT
     Indication: Autoinflammatory disease
     Dosage: UNK
  4. METHYLPREDNISOLONE [Suspect]
     Active Substance: METHYLPREDNISOLONE
     Indication: Autoinflammatory disease
     Dosage: HIGH DOSE
  5. METHYLPREDNISOLONE [Suspect]
     Active Substance: METHYLPREDNISOLONE
     Dosage: STEROID TAPERING
  6. METHOTREXATE [Suspect]
     Active Substance: METHOTREXATE
     Indication: Autoinflammatory disease
     Dosage: UNK UNK, 1/WEEK
  7. ANAKINRA [Concomitant]
     Active Substance: ANAKINRA
     Indication: Autoinflammatory disease
     Dosage: UNK
  8. ADALIMUMAB [Concomitant]
     Active Substance: ADALIMUMAB
     Indication: Autoinflammatory disease
     Dosage: UNK UNK, 1/WEEK
  9. CANAKINUMAB [Concomitant]
     Active Substance: CANAKINUMAB
     Indication: Autoinflammatory disease
     Dosage: UNK

REACTIONS (4)
  - Drug ineffective for unapproved indication [Unknown]
  - Steroid dependence [Unknown]
  - Off label use [Unknown]
  - Off label use [Unknown]
